FAERS Safety Report 5115701-X (Version None)
Quarter: 2006Q3

REPORT INFORMATION
  Report Type: 
  Country: None (occurrence: None)
  Receive Date: 20060926
  Receipt Date: 20060926
  Transmission Date: 20061208
  Serious: Yes (Hospitalization)
  Sender: FDA-Public Use
  Company Number: None

PATIENT
  Age: 84 Year
  Sex: Female

DRUGS (1)
  1. DITROPAN [Suspect]
     Dosage: 5 MG DAILY PO
     Route: 048
     Dates: start: 20060613, end: 20060714

REACTIONS (8)
  - ABDOMINAL PAIN [None]
  - BLOOD COUNT ABNORMAL [None]
  - EPIDERMAL NECROSIS [None]
  - HEADACHE [None]
  - LEUKOCYTOCLASTIC VASCULITIS [None]
  - NAUSEA [None]
  - PYREXIA [None]
  - RASH [None]
